FAERS Safety Report 19359949 (Version 2)
Quarter: 2021Q2

REPORT INFORMATION
  Report Type: Spontaneous
  Country: US (occurrence: US)
  Receive Date: 20210602
  Receipt Date: 20210630
  Transmission Date: 20210717
  Serious: No
  Sender: FDA-Public Use
  Company Number: US-PFIZER INC-2019066819

PATIENT
  Age: 20 Year
  Sex: Female
  Weight: 90.72 kg

DRUGS (3)
  1. GENOTROPIN [Suspect]
     Active Substance: SOMATROPIN
     Indication: PRADER-WILLI SYNDROME
     Dosage: 1 MG, DAILY (INJECTED NIGHTLY)
     Dates: start: 201902
  2. GENOTROPIN [Suspect]
     Active Substance: SOMATROPIN
     Indication: CONGENITAL ANOMALY
  3. GENOTROPIN [Suspect]
     Active Substance: SOMATROPIN
     Indication: SHORT STATURE

REACTIONS (4)
  - Off label use [Unknown]
  - Device leakage [Not Recovered/Not Resolved]
  - Drug dose omission by device [Not Recovered/Not Resolved]
  - Expired device used [Unknown]

NARRATIVE: CASE EVENT DATE: 201902
